FAERS Safety Report 25272215 (Version 3)
Quarter: 2025Q2

REPORT INFORMATION
  Report Type: Report from Study
  Country: CO (occurrence: CO)
  Receive Date: 20250506
  Receipt Date: 20250603
  Transmission Date: 20250717
  Serious: Yes (Hospitalization, Other)
  Sender: NOVARTIS
  Company Number: CO-002147023-NVSC2025CO066103

PATIENT
  Age: 56 Year
  Sex: Female
  Weight: 81 kg

DRUGS (3)
  1. KISQALI [Suspect]
     Active Substance: RIBOCICLIB SUCCINATE
     Indication: Hormone receptor positive HER2 negative breast cancer
     Dosage: 600 MG, QD
     Route: 048
     Dates: start: 20241227
  2. KISQALI [Suspect]
     Active Substance: RIBOCICLIB SUCCINATE
     Route: 065
     Dates: start: 20250422
  3. KISQALI [Suspect]
     Active Substance: RIBOCICLIB SUCCINATE
     Dosage: 600 MG, QD
     Route: 048

REACTIONS (8)
  - Cough [Unknown]
  - Malaise [Unknown]
  - Lung opacity [Recovered/Resolved]
  - Low lung compliance [Unknown]
  - Neoplasm malignant [Unknown]
  - Toxicity to various agents [Unknown]
  - Ill-defined disorder [Unknown]
  - Drug ineffective [Recovered/Resolved]

NARRATIVE: CASE EVENT DATE: 20250401
